FAERS Safety Report 5093149-4 (Version None)
Quarter: 2006Q3

REPORT INFORMATION
  Report Type: 
  Country: None (occurrence: None)
  Receive Date: 20060830
  Receipt Date: 20060818
  Transmission Date: 20061208
  Serious: Yes (Hospitalization)
  Sender: FDA-Public Use
  Company Number: US-ROCHE-460246

PATIENT
  Age: 5 Year
  Sex: Female

DRUGS (7)
  1. ZENAPAX [Suspect]
     Indication: IMMUNOSUPPRESSION
     Dosage: INDUCTION THERAPY.
     Route: 065
  2. MYCOPHENOLATE MOFETIL [Suspect]
     Indication: IMMUNOSUPPRESSION
     Route: 065
  3. PREDNISONE TAB [Suspect]
     Indication: IMMUNOSUPPRESSION
     Route: 048
  4. PREDNISONE TAB [Suspect]
     Route: 048
  5. PREDNISONE TAB [Suspect]
     Route: 048
  6. SIROLIMUS [Suspect]
     Indication: IMMUNOSUPPRESSION
     Dosage: TROUGH TARGET 10-15 NG/ML.
     Route: 065
  7. SIROLIMUS [Suspect]
     Dosage: TROUGH TARGET 5-8 NG/ML.
     Route: 065

REACTIONS (5)
  - CEREBROVASCULAR DISORDER [None]
  - LYMPHOPROLIFERATIVE DISORDER [None]
  - PAPILLOEDEMA [None]
  - RETINAL ISCHAEMIA [None]
  - UVEITIS [None]
